FAERS Safety Report 22102456 (Version 1)
Quarter: 2023Q1

REPORT INFORMATION
  Report Type: Spontaneous
  Country: IT (occurrence: IT)
  Receive Date: 20230316
  Receipt Date: 20230316
  Transmission Date: 20230418
  Serious: Yes (Other)
  Sender: FDA-Public Use
  Company Number: IT-CELLTRION INC.-2023IT004986

PATIENT

DRUGS (14)
  1. INFLIXIMAB [Suspect]
     Active Substance: INFLIXIMAB
     Indication: Psoriatic arthropathy
     Dosage: 5 MG/KG, ^5 MILLIGRAM/KILOGRAM^
  2. ADALIMUMAB [Suspect]
     Active Substance: ADALIMUMAB
     Indication: Psoriatic arthropathy
     Dosage: 40 MG EVERY 2 WK, ^40 MILLIGRAM, Q2W^
  3. USTEKINUMAB [Suspect]
     Active Substance: USTEKINUMAB
     Indication: Erythrodermic psoriasis
     Dosage: 90 MG, ^90 MILLIGRAM^
  4. METHOTREXATE [Suspect]
     Active Substance: METHOTREXATE
     Indication: Psoriatic arthropathy
     Dosage: 15 MG EVERY 1 WK, ^15 MILLIGRAM, QW^
  5. PREDNISONE [Suspect]
     Active Substance: PREDNISONE
     Indication: Erythrodermic psoriasis
     Dosage: 25 MG EVERY 1 D, ^25 MILLIGRAM, QD^ (BATCH: UNK)
     Route: 048
  6. ETANERCEPT [Suspect]
     Active Substance: ETANERCEPT
     Indication: Erythrodermic psoriasis
     Dosage: ^50 MILLIGRAM, 0.5 WEEK^
  7. ETANERCEPT [Suspect]
     Active Substance: ETANERCEPT
     Dosage: 50 MG EVERY 1 WK, ^50 MILLIGRAM, QW MAINTENANCE DOSE^
  8. ETANERCEPT [Suspect]
     Active Substance: ETANERCEPT
     Dosage: ^50 MILLIGRAM, 0.5 WEEK AS OFF LABEL REGIMEN^
  9. ETANERCEPT [Suspect]
     Active Substance: ETANERCEPT
     Dosage: 50 MG EVERY 1 WK, ^50 MILLIGRAM, QW (50 MG, Q WEEK)^
  10. CYCLOSPORINE [Suspect]
     Active Substance: CYCLOSPORINE
     Indication: Psoriatic arthropathy
     Dosage: 200 MG EVERY 1 D, ^150-200 MG/QD
  11. CYCLOSPORINE [Suspect]
     Active Substance: CYCLOSPORINE
     Indication: Erythrodermic psoriasis
     Dosage: EVERY 1 D, ^150-200 MG/QD^
  12. ACITRETIN [Suspect]
     Active Substance: ACITRETIN
     Indication: Erythrodermic psoriasis
     Dosage: 25 MG EVERY 1 D, ^25 MILLIGRAM, QD^
  13. SECUKINUMAB [Concomitant]
     Active Substance: SECUKINUMAB
     Indication: Product used for unknown indication
     Dosage: UNK
  14. ETANERCEPT [Concomitant]
     Active Substance: ETANERCEPT
     Indication: Product used for unknown indication

REACTIONS (8)
  - Cushing^s syndrome [Recovering/Resolving]
  - Treatment failure [Unknown]
  - Concomitant disease progression [Unknown]
  - Renal failure [Unknown]
  - Hypertension [Unknown]
  - Psoriasis [Recovered/Resolved]
  - Dyslipidaemia [Recovering/Resolving]
  - Hepatic enzyme increased [Recovering/Resolving]
